FAERS Safety Report 7554905-3 (Version None)
Quarter: 2011Q2

REPORT INFORMATION
  Report Type: 
  Country: None (occurrence: None)
  Receive Date: 20110617
  Receipt Date: 20110607
  Transmission Date: 20111010
  Serious: Yes (Death, Hospitalization)
  Sender: FDA-Public Use
  Company Number: SE-JNJFOC-20110606595

PATIENT
  Sex: Female

DRUGS (10)
  1. METOPROLOL TARTRATE [Concomitant]
  2. NITRAZEPAM [Concomitant]
  3. BEHEPAN [Concomitant]
  4. IBUPROFEN [Suspect]
     Indication: PAIN
     Route: 048
     Dates: start: 20110201, end: 20110401
  5. TROMBYL [Concomitant]
  6. SIMVASTATIN [Concomitant]
  7. GLYTRIN [Concomitant]
  8. ALVEDON [Concomitant]
     Indication: PAIN
  9. IMPUGAN [Concomitant]
  10. ENALAPRIL MALEATE [Concomitant]

REACTIONS (2)
  - CARDIAC FAILURE [None]
  - ANAEMIA [None]
